FAERS Safety Report 5574774-0 (Version None)
Quarter: 2007Q4

REPORT INFORMATION
  Report Type: 
  Country: None (occurrence: None)
  Receive Date: 20071226
  Receipt Date: 20071226
  Transmission Date: 20080405
  Serious: Yes (Hospitalization)
  Sender: FDA-Public Use
  Company Number: None

PATIENT
  Sex: Female
  Weight: 94.5 kg

DRUGS (15)
  1. CYCLOPHOSPHAMIDE [Suspect]
     Dosage: 1240 MG
  2. DOXORUBICIN HCL [Suspect]
     Dosage: 93 MG
  3. ACTOS [Concomitant]
  4. ADVAIR HFA [Concomitant]
  5. AMILORIDE HYDROCHLORIDE [Concomitant]
  6. DILAUDID [Concomitant]
  7. EFFEXOR [Concomitant]
  8. ESOMEPRAZOLE [Concomitant]
  9. GLIPIZIDE [Concomitant]
  10. ORETIC [Concomitant]
  11. PHENERGAN HCL [Concomitant]
  12. PRINIVIL [Concomitant]
  13. SALAGEN [Concomitant]
  14. SINGULAIR [Concomitant]
  15. TOPROL-XL [Concomitant]

REACTIONS (7)
  - ABSCESS [None]
  - BACTERIAL INFECTION [None]
  - LUNG INFILTRATION [None]
  - LUNG NEOPLASM [None]
  - PAIN [None]
  - POSTOPERATIVE ABSCESS [None]
  - WOUND COMPLICATION [None]
